FAERS Safety Report 4856108-X (Version None)
Quarter: 2005Q4

REPORT INFORMATION
  Report Type: 
  Country: None (occurrence: None)
  Receive Date: 20051216
  Receipt Date: 20050829
  Transmission Date: 20060501
  Serious: Yes (Hospitalization)
  Sender: FDA-Public Use
  Company Number: US-MERCK-0508USA04776

PATIENT
  Age: 41 Year
  Sex: Male
  Weight: 120 kg

DRUGS (5)
  1. VIOXX [Suspect]
     Indication: ARTHRITIS
     Route: 048
     Dates: start: 20020322, end: 20041221
  2. VIOXX [Suspect]
     Route: 048
     Dates: start: 20020322, end: 20041221
  3. VIOXX [Suspect]
     Indication: BURSITIS
     Route: 048
     Dates: start: 20020322, end: 20041221
  4. VIOXX [Suspect]
     Route: 048
     Dates: start: 20020322, end: 20041221
  5. TYLENOL [Concomitant]
     Route: 065

REACTIONS (4)
  - CEREBROVASCULAR ACCIDENT [None]
  - CHEST PAIN [None]
  - HYPOAESTHESIA [None]
  - NEPHROLITHIASIS [None]
